FAERS Safety Report 6150622-5 (Version None)
Quarter: 2009Q2

REPORT INFORMATION
  Report Type: 
  Country: None (occurrence: None)
  Receive Date: 20090408
  Receipt Date: 20090408
  Transmission Date: 20091009
  Serious: Yes (Other)
  Sender: FDA-Public Use
  Company Number: None

PATIENT
  Age: 70 Year
  Sex: Female
  Weight: 57.1532 kg

DRUGS (1)
  1. CRESTOR [Suspect]
     Indication: BLOOD CHOLESTEROL INCREASED
     Dosage: 5MG 1/2 TABLET ONCE DAILY PO
     Route: 048
     Dates: start: 20070718, end: 20081023

REACTIONS (9)
  - ARTHRALGIA [None]
  - ASTHENIA [None]
  - FATIGUE [None]
  - GAIT DISTURBANCE [None]
  - MUSCULAR WEAKNESS [None]
  - MYALGIA [None]
  - NECK PAIN [None]
  - PAIN [None]
  - PAIN IN EXTREMITY [None]
